FAERS Safety Report 16478296 (Version 2)
Quarter: 2020Q2

REPORT INFORMATION
  Report Type: Spontaneous
  Country: CH (occurrence: CH)
  Receive Date: 20190626
  Receipt Date: 20200508
  Transmission Date: 20200713
  Serious: Yes (Hospitalization, Other)
  Sender: FDA-Public Use
  Company Number: CH-PFIZER INC-2019266451

PATIENT
  Age: 77 Year
  Sex: Male

DRUGS (13)
  1. ANAFRANIL [Suspect]
     Active Substance: CLOMIPRAMINE HYDROCHLORIDE
     Dosage: 75 MG, 2X/DAY
     Route: 048
     Dates: start: 201902, end: 20190719
  2. XANAX [Concomitant]
     Active Substance: ALPRAZOLAM
     Dosage: UNK
     Dates: end: 20190711
  3. SEROQUEL [Suspect]
     Active Substance: QUETIAPINE FUMARATE
     Dosage: 150 MG, 1X/DAY
     Dates: end: 20190719
  4. XANAX [Concomitant]
     Active Substance: ALPRAZOLAM
     Dosage: UNK
     Dates: start: 20190719
  5. XALATAN [Suspect]
     Active Substance: LATANOPROST
     Dosage: 1 GTT, 1X/DAY, IN EACH EYE
     Route: 047
  6. LIPANTHYL [Concomitant]
     Active Substance: FENOFIBRATE
     Dosage: UNK
  7. LAXOBERON [Concomitant]
     Active Substance: SODIUM PICOSULFATE
     Dosage: UNK
  8. ENTUMINE [Suspect]
     Active Substance: CLOTHIAPINE
     Dosage: 160 MG, DAILY, (60-60-40)
     Dates: start: 201902, end: 20190711
  9. ATACAND [Concomitant]
     Active Substance: CANDESARTAN CILEXETIL
     Dosage: UNK
  10. LUVIT D3 [Concomitant]
     Active Substance: CHOLECALCIFEROL
     Dosage: UNK
  11. REMERON [Suspect]
     Active Substance: MIRTAZAPINE
     Dosage: 15 MG, 1X/DAY
     Route: 048
     Dates: end: 20190719
  12. ENTUMINE [Suspect]
     Active Substance: CLOTHIAPINE
     Dosage: 160 MG, DAILY
     Dates: start: 20190711, end: 20190719
  13. ZOLPIDEM [Concomitant]
     Active Substance: ZOLPIDEM TARTRATE
     Dosage: UNK

REACTIONS (12)
  - Hyperhidrosis [Recovered/Resolved]
  - Neuroleptic malignant syndrome [Recovered/Resolved]
  - Fall [Unknown]
  - Night sweats [Not Recovered/Not Resolved]
  - Rhabdomyolysis [Unknown]
  - Blood creatinine increased [Unknown]
  - Tremor [Unknown]
  - Muscle rigidity [Unknown]
  - Blood creatine phosphokinase increased [Recovering/Resolving]
  - Serotonin syndrome [Unknown]
  - Hyperthermia [Unknown]
  - Extrapyramidal disorder [Unknown]

NARRATIVE: CASE EVENT DATE: 201902
